FAERS Safety Report 7339951-7 (Version None)
Quarter: 2011Q1

REPORT INFORMATION
  Report Type: 
  Country: None (occurrence: None)
  Receive Date: 20110228
  Receipt Date: 20110210
  Transmission Date: 20110831
  Serious: Yes (Other)
  Sender: FDA-Public Use
  Company Number: AUR-APL-2011-00532

PATIENT
  Sex: Male

DRUGS (2)
  1. OMNIC [Suspect]
  2. FINASTERIDE [Suspect]
     Dosage: 5MG-DAILY

REACTIONS (1)
  - TESTICULAR MASS [None]
